FAERS Safety Report 25089463 (Version 1)
Quarter: 2025Q1

REPORT INFORMATION
  Report Type: Spontaneous
  Country: US (occurrence: None)
  Receive Date: 20250317
  Receipt Date: 20250317
  Transmission Date: 20250409
  Serious: Yes (Life-Threatening)
  Sender: FDA-CTU
  Company Number: None

PATIENT
  Age: 21 Year
  Sex: Male
  Weight: 85.5 kg

DRUGS (2)
  1. ACRIVASTINE [Suspect]
     Active Substance: ACRIVASTINE
     Indication: Nasopharyngitis
  2. ACRIVASTINE [Suspect]
     Active Substance: ACRIVASTINE
     Indication: Headache

REACTIONS (11)
  - Heart rate increased [None]
  - Anxiety [None]
  - Stress [None]
  - Asthenia [None]
  - Feeling abnormal [None]
  - Fear [None]
  - Impaired work ability [None]
  - Insomnia [None]
  - Feeding disorder [None]
  - Brief resolved unexplained event [None]
  - Speech disorder [None]

NARRATIVE: CASE EVENT DATE: 20240512
